FAERS Safety Report 5938532-7 (Version None)
Quarter: 2008Q4

REPORT INFORMATION
  Report Type: 
  Country: None (occurrence: None)
  Receive Date: 20081103
  Receipt Date: 20081024
  Transmission Date: 20090506
  Serious: No
  Sender: FDA-Public Use
  Company Number: PHEH2008US08786

PATIENT
  Sex: Male
  Weight: 78.322 kg

DRUGS (18)
  1. RECLAST [Suspect]
     Indication: OSTEOPOROSIS
     Dosage: 5 MG ONCE YEARLY
     Route: 042
     Dates: start: 20080905, end: 20080905
  2. VITAMIN D [Concomitant]
     Dosage: 2X 1000 MG QD
  3. PROMETHAZINE W/ CODEINE [Concomitant]
     Dosage: UNK
  4. ZOLPIDEM [Concomitant]
     Dosage: 10 MG HS PRN
  5. CRESTOR [Concomitant]
     Dosage: 10 MG, QD
  6. BENICAR [Concomitant]
     Dosage: 40 MG, QD
  7. GLUCOSAMINE COMPLEX [Concomitant]
     Dosage: UNK
  8. NIACIN [Concomitant]
     Dosage: 500 MG, QHS
  9. ASTELIN [Concomitant]
     Dosage: UNK
  10. LEVITRA [Concomitant]
     Dosage: 20 MG, PRN
     Route: 048
  11. ZYRTEC [Concomitant]
     Dosage: 10 MG, PRN
  12. METOPROLOL TARTRATE [Concomitant]
     Dosage: 50 MG, QD
  13. LOPROX [Concomitant]
     Route: 061
  14. DESONIDE [Concomitant]
     Dosage: UNK
     Route: 061
  15. LOCOID [Concomitant]
     Dosage: UNK
     Route: 061
  16. ASPIRIN [Concomitant]
     Dosage: 81 MG, QD
  17. MULTI-VITAMINS [Concomitant]
     Dosage: UNK
  18. CALTRATE + D                       /00944201/ [Concomitant]
     Dosage: UNK

REACTIONS (8)
  - ARTHRALGIA [None]
  - ARTHRITIS [None]
  - BACK PAIN [None]
  - CONDITION AGGRAVATED [None]
  - GAIT DISTURBANCE [None]
  - INFLUENZA LIKE ILLNESS [None]
  - MUSCULOSKELETAL STIFFNESS [None]
  - SLEEP DISORDER [None]
